FAERS Safety Report 15995670 (Version 2)
Quarter: 2019Q2

REPORT INFORMATION
  Report Type: Spontaneous
  Country: DE (occurrence: DE)
  Receive Date: 20190222
  Receipt Date: 20190403
  Transmission Date: 20190711
  Serious: Yes (Death, Life-Threatening)
  Sender: FDA-Public Use
  Company Number: DE-AMREGENT-20190285

PATIENT
  Sex: Female
  Weight: 75 kg

DRUGS (8)
  1. AMLODIPINE [Concomitant]
     Active Substance: AMLODIPINE BESYLATE
     Dosage: 10 MG (5 MG, 1-0-1)
     Route: 065
  2. ASPIRIN. [Concomitant]
     Active Substance: ASPIRIN
     Dosage: 100 MG (1-0-0)
     Route: 065
  3. MARCUMAR [Concomitant]
     Active Substance: PHENPROCOUMON
     Dosage: UNKNOWN
     Route: 065
  4. KONKION [Concomitant]
     Dosage: 10 MG
     Route: 042
     Dates: start: 20180924
  5. FUROSEMIDE. [Concomitant]
     Active Substance: FUROSEMIDE
     Dosage: 10 MG
     Route: 042
     Dates: start: 20180924
  6. HCT [Concomitant]
     Active Substance: HYDROCHLOROTHIAZIDE
     Dosage: 25 MG (1-0-0)
     Route: 065
  7. BISOPROLOL [Concomitant]
     Active Substance: BISOPROLOL
     Dosage: 5 MG (2.5 MG,1-0-1)
     Route: 065
  8. FERINJECT [Suspect]
     Active Substance: FERRIC CARBOXYMALTOSE
     Dosage: 500 MG
     Route: 042
     Dates: start: 20180924, end: 20180924

REACTIONS (9)
  - Respiratory arrest [Fatal]
  - Hyperparathyroidism secondary [Unknown]
  - Cardiogenic shock [Fatal]
  - Sepsis [Not Recovered/Not Resolved]
  - Monoclonal gammopathy [Unknown]
  - Dyspnoea [Fatal]
  - Vitamin D deficiency [Unknown]
  - Pneumothorax [Unknown]
  - Aortic aneurysm [Unknown]

NARRATIVE: CASE EVENT DATE: 2018
